FAERS Safety Report 5120104-8 (Version None)
Quarter: 2006Q4

REPORT INFORMATION
  Report Type: 
  Country: None (occurrence: None)
  Receive Date: 20061004
  Receipt Date: 20060925
  Transmission Date: 20070319
  Serious: Yes (Other)
  Sender: FDA-Public Use
  Company Number: FR-JNJFOC-20060905949

PATIENT
  Age: 44 Year
  Sex: Male

DRUGS (4)
  1. REMICADE [Suspect]
     Dosage: LAST INFUSION
     Route: 042
  2. REMICADE [Suspect]
     Indication: CROHN'S DISEASE
     Dosage: FIRST INFUSION
     Route: 042
  3. METHOTREXATE [Concomitant]
     Indication: CROHN'S DISEASE
     Route: 048
  4. GLIVEK [Concomitant]
     Indication: CHRONIC MYELOID LEUKAEMIA
     Route: 065

REACTIONS (1)
  - CHRONIC MYELOID LEUKAEMIA [None]
